FAERS Safety Report 13569079 (Version 1)
Quarter: 2017Q2

REPORT INFORMATION
  Report Type: Spontaneous
  Country: RU (occurrence: RU)
  Receive Date: 20170522
  Receipt Date: 20170522
  Transmission Date: 20170830
  Serious: Yes (Hospitalization)
  Sender: FDA-Public Use
  Company Number: RU-TEVA-769910ISR

PATIENT
  Sex: Female

DRUGS (1)
  1. METFORMIN-TEVA [Suspect]
     Active Substance: METFORMIN HYDROCHLORIDE
     Route: 048

REACTIONS (2)
  - Angioedema [Recovered/Resolved]
  - Drug ineffective [Recovered/Resolved]
